FAERS Safety Report 4508762-X (Version None)
Quarter: 2004Q4

REPORT INFORMATION
  Report Type: 
  Country: None (occurrence: None)
  Receive Date: 20041123
  Receipt Date: 20040716
  Transmission Date: 20050328
  Serious: No
  Sender: FDA-Public Use
  Company Number: US-GLAXOSMITHKLINE-A0518616A

PATIENT
  Sex: Male

DRUGS (3)
  1. WELLBUTRIN SR [Suspect]
     Indication: DEPRESSION
     Route: 048
  2. LIPITOR [Concomitant]
  3. DOXEPIN HCL [Concomitant]

REACTIONS (1)
  - DRUG INEFFECTIVE [None]
